FAERS Safety Report 13985844 (Version 5)
Quarter: 2020Q4

REPORT INFORMATION
  Report Type: Spontaneous
  Country: US (occurrence: US)
  Receive Date: 20170919
  Receipt Date: 20201022
  Transmission Date: 20210113
  Serious: Yes (Hospitalization, Other)
  Sender: FDA-Public Use
  Company Number: US-PFIZER INC-2017398799

PATIENT
  Age: 76 Year
  Sex: Male
  Weight: 77.6 kg

DRUGS (33)
  1. ONDANSETRON [Concomitant]
     Active Substance: ONDANSETRON
     Indication: NAUSEA
     Dosage: 8 MG, AS NEEDED (EVERY 8 HOURS )
     Route: 048
     Dates: start: 2011
  2. SUTENT [Suspect]
     Active Substance: SUNITINIB MALATE
     Dosage: 50 MG, CYCLIC (TAKE ONE CAPSULE BY MOUTH DAILY FOR 7 DAYS, REST 7 DAYS, THEN REPEAT)
     Route: 048
  3. TAMSULOSIN [Concomitant]
     Active Substance: TAMSULOSIN
     Dosage: 0.4 MG, DAILY
     Route: 048
  4. KENALOG [Concomitant]
     Active Substance: TRIAMCINOLONE ACETONIDE
     Indication: RASH
     Dosage: UNK, AS NEEDED [APPLY TO RASH DAILY AS NEEDED]
  5. SUTENT [Suspect]
     Active Substance: SUNITINIB MALATE
     Indication: HEPATIC CANCER METASTATIC
     Dosage: 50 MG, CYCLIC (FOR ONE WEEK AND THEN OFF FOR ONE WEEK )
     Route: 048
     Dates: start: 20111002
  6. SUTENT [Suspect]
     Active Substance: SUNITINIB MALATE
     Indication: RENAL CANCER
     Dosage: 50 MG, DAILY (TAKE AS DIRECTED)
     Route: 048
  7. PROCHLORPERAZINE. [Concomitant]
     Active Substance: PROCHLORPERAZINE
     Indication: NAUSEA
     Dosage: 10 MG, AS NEEDED (EVERY 6 HOURS )
     Route: 048
     Dates: start: 2011
  8. NASONEX [Concomitant]
     Active Substance: MOMETASONE FUROATE
     Dosage: UNK, DAILY [50 MCG/ACTUATION NASAL SPRAY USE 1 TO 2 SPRAYS IEN QD]
     Route: 045
  9. COLCHICINE. [Concomitant]
     Active Substance: COLCHICINE
     Indication: GOUT
     Dosage: 0.6 MG, UNK (0.6 MG ONE TABLET BY MOUTH ONCE TWICE A WEEK)
     Route: 048
  10. FOLIC ACID. [Concomitant]
     Active Substance: FOLIC ACID
     Dosage: 1 MG, DAILY
     Route: 048
     Dates: start: 2012
  11. FLONASE [Concomitant]
     Active Substance: FLUTICASONE PROPIONATE
     Dosage: UNK, DAILY [50 MCG/ACTUATION NASAL SPRAY] [SHAKE LQ AND U 2 SPRAYS IEN QD]
     Route: 045
  12. CALCIUM + VITAMIN D [Concomitant]
     Active Substance: CALCIUM\VITAMIN D
     Dosage: 1 DF, 1X/DAY [(CALCIUM-VITAMIN D) 500 MG (1,250MG) -200 UNIT] [TAKE 1 TABLET BY MOUTH NIGHTLY]
     Route: 048
  13. VITAMIN B12 [Concomitant]
     Active Substance: CYANOCOBALAMIN
     Dosage: 50 UG, DAILY
     Route: 048
  14. SUTENT [Suspect]
     Active Substance: SUNITINIB MALATE
     Dosage: UNK, CYCLIC (ON ONE WEEK, OFF ONE WEEK)
     Dates: start: 20111003
  15. FOLVITE [Concomitant]
     Active Substance: FOLIC ACID
     Dosage: 1 MG, DAILY
     Route: 048
  16. FLOMAX [Concomitant]
     Active Substance: TAMSULOSIN HYDROCHLORIDE
     Dosage: 0.4 MG, DAILY
     Route: 048
  17. ALBUTEROL. [Concomitant]
     Active Substance: ALBUTEROL
     Dosage: UNK, AS NEEDED [2.5 MG /3 ML] [TAKE 3 MLS (2.5 MG TOTAL) BY NEBULIZATION EVERY 4 (FOUR) HOURS]
  18. AMLODIPINE [Concomitant]
     Active Substance: AMLODIPINE BESYLATE
     Dosage: UNK
  19. PREVNAR [Concomitant]
     Active Substance: PNEUMOCOCCAL 7-VALENT CONJUGATE VACCINE (DIPHTHERIA CRM197 PROTEIN)
     Dosage: UNK
     Dates: start: 20160313
  20. NEURONTIN [Concomitant]
     Active Substance: GABAPENTIN
     Dosage: 100 MG, UNK
  21. SUTENT [Suspect]
     Active Substance: SUNITINIB MALATE
     Indication: RENAL CANCER STAGE I
     Dosage: 50 MG, CYCLIC (DAILY FOR 4 WEEKS, AND THEN WAS OFF OF THE MEDICATION FOR 2 WEEKS)
     Route: 048
     Dates: start: 2011
  22. LASIX [Concomitant]
     Active Substance: FUROSEMIDE
     Dosage: 80 MG, 2X/DAY [TK 1 T PO BID]
     Route: 048
  23. NORCO [Concomitant]
     Active Substance: ACETAMINOPHEN\HYDROCODONE BITARTRATE
     Indication: PAIN
     Dosage: 1 DF, AS NEEDED [HYDROCODONE-10, ACETAMINOPHEN-325 MG] [TAKE 1 TABLET BY MOUTH EVERY 6 HOURS]
     Route: 048
  24. COMPAZINE [Concomitant]
     Active Substance: PROCHLORPERAZINE MALEATE
     Indication: NAUSEA
     Dosage: 10 MG, AS NEEDED [TAKE 1 TABLET (10 MG TOTAL) BY MOUTH EVERY 6 (SIX) HOURS]
     Route: 048
  25. HYDROCODONE [Concomitant]
     Active Substance: HYDROCODONE
     Indication: PAIN
     Dosage: 10-325T ONE TABLET BY MOUTH UP TO THREE TABLETS PER DAY
     Route: 048
     Dates: start: 2015
  26. XANAX [Concomitant]
     Active Substance: ALPRAZOLAM
     Indication: NEURALGIA
     Dosage: 0.5 MG, AS NEEDED (TWICE DAILY)
     Route: 048
     Dates: start: 2016
  27. FUROSEMIDE. [Concomitant]
     Active Substance: FUROSEMIDE
     Indication: URINARY INCONTINENCE
     Dosage: 20 MG, DAILY
     Route: 048
     Dates: start: 2016
  28. ALBUTEROL. [Concomitant]
     Active Substance: ALBUTEROL
     Indication: DYSPNOEA
     Dosage: AS NEEDED (ONE INHALATION BY MOUTH EVERY FOUR HOURS WHEN NEEDED)
     Route: 048
     Dates: start: 2015
  29. LOSARTAN. [Concomitant]
     Active Substance: LOSARTAN
     Dosage: UNK
  30. CLONIDINE. [Concomitant]
     Active Substance: CLONIDINE
     Dosage: UNK
  31. MIRALAX [Concomitant]
     Active Substance: POLYETHYLENE GLYCOL 3350
     Dosage: 17 G, 2X/DAY
     Route: 048
  32. ARANESP [Concomitant]
     Active Substance: DARBEPOETIN ALFA
     Dosage: UNK
     Dates: start: 20160816
  33. ZOFRAN [Concomitant]
     Active Substance: ONDANSETRON HYDROCHLORIDE
     Indication: NAUSEA
     Dosage: 8 MG, AS NEEDED [TAKE 1 TABLET (8 MG) BY MOUTH EVERY 8 HOURS]
     Route: 048

REACTIONS (5)
  - Weight fluctuation [Recovered/Resolved]
  - White blood cell count decreased [Not Recovered/Not Resolved]
  - Renal impairment [Not Recovered/Not Resolved]
  - Condition aggravated [Not Recovered/Not Resolved]
  - Blister [Recovered/Resolved]

NARRATIVE: CASE EVENT DATE: 20170823
